FAERS Safety Report 8205326-1 (Version None)
Quarter: 2012Q1

REPORT INFORMATION
  Report Type: 
  Country: None (occurrence: None)
  Receive Date: 20120313
  Receipt Date: 20120301
  Transmission Date: 20120608
  Serious: Yes (Other)
  Sender: FDA-Public Use
  Company Number: RU-JNJFOC-20120305354

PATIENT
  Sex: Female
  Weight: 43 kg

DRUGS (19)
  1. REMICADE [Suspect]
     Dosage: 3 MG/KG.
     Route: 042
     Dates: start: 20100521
  2. SUPRASTIN [Concomitant]
     Route: 065
     Dates: start: 20110801
  3. SUPRASTIN [Concomitant]
     Route: 065
     Dates: start: 20110415
  4. DEXAMETHASONE [Concomitant]
     Indication: PREMEDICATION
     Route: 065
     Dates: start: 20120131
  5. REMICADE [Suspect]
     Dosage: 5 MG/KG.
     Route: 042
     Dates: start: 20111111
  6. SUPRASTIN [Concomitant]
     Route: 065
     Dates: start: 20101120
  7. REMICADE [Suspect]
     Dosage: 5 MG/KG.
     Route: 042
     Dates: start: 20110415
  8. SUPRASTIN [Concomitant]
     Route: 065
     Dates: start: 20100920
  9. REMICADE [Suspect]
     Dosage: 5 MG/KG.
     Route: 042
     Dates: start: 20120131
  10. REMICADE [Suspect]
     Indication: PRODUCT USED FOR UNKNOWN INDICATION
     Dosage: 5 MG/KG.
     Route: 042
     Dates: start: 20110801
  11. REMICADE [Suspect]
     Dosage: 3 MG/KG.
     Route: 042
     Dates: start: 20100325
  12. REMICADE [Suspect]
     Dosage: 3 MG/KG.
     Route: 042
     Dates: start: 20100720
  13. SUPRASTIN [Concomitant]
     Route: 065
     Dates: start: 20110127
  14. SUPRASTIN [Concomitant]
     Route: 065
     Dates: start: 20100720
  15. REMICADE [Suspect]
     Dosage: 5 MG/KG.
     Route: 042
     Dates: start: 20101120
  16. REMICADE [Suspect]
     Dosage: 3 MG/KG.
     Route: 042
     Dates: start: 20100920
  17. SUPRASTIN [Concomitant]
     Route: 065
     Dates: start: 20120131
  18. REMICADE [Suspect]
     Route: 042
     Dates: start: 20110127
  19. SUPRASTIN [Concomitant]
     Indication: PREMEDICATION
     Route: 065
     Dates: start: 20111111

REACTIONS (6)
  - ACUTE TONSILLITIS [None]
  - HYPOTENSION [None]
  - DYSPNOEA [None]
  - PUPILLARY DISORDER [None]
  - ERYTHEMA [None]
  - TRANSFUSION REACTION [None]
